FAERS Safety Report 5133912-4 (Version None)
Quarter: 2006Q4

REPORT INFORMATION
  Report Type: 
  Country: None (occurrence: None)
  Receive Date: 20061019
  Receipt Date: 20061006
  Transmission Date: 20070319
  Serious: Yes (Other)
  Sender: FDA-Public Use
  Company Number: 2006123758

PATIENT
  Age: 67 Year
  Sex: Male

DRUGS (3)
  1. SUTENT [Suspect]
     Indication: RENAL CANCER METASTATIC
     Dosage: 50 MG, ORAL
     Route: 048
     Dates: start: 20060817, end: 20060908
  2. MST (MORPHINE SULFATE) [Concomitant]
  3. AMLODIPINE [Concomitant]

REACTIONS (2)
  - CEREBRAL INFARCTION [None]
  - COORDINATION ABNORMAL [None]
